FAERS Safety Report 20942643 (Version 12)
Quarter: 2023Q1

REPORT INFORMATION
  Report Type: Report from Study
  Country: US (occurrence: US)
  Receive Date: 20220610
  Receipt Date: 20230324
  Transmission Date: 20230417
  Serious: No
  Sender: FDA-Public Use
  Company Number: US-NOVARTISTESTPH-NVSC2022US133305

PATIENT
  Sex: Female

DRUGS (3)
  1. COSENTYX [Suspect]
     Active Substance: SECUKINUMAB
     Indication: Psoriasis
     Dosage: 300 MG, QW, (EVERY WEEK X 5 WEEKS THEN EVERY 4 WEEKS)
     Route: 058
     Dates: start: 20220510
  2. COSENTYX [Suspect]
     Active Substance: SECUKINUMAB
     Dosage: 300 MG, QMO
     Route: 058
  3. COSENTYX [Suspect]
     Active Substance: SECUKINUMAB
     Dosage: 300 MG, QMO
     Route: 058
     Dates: start: 20221212

REACTIONS (7)
  - Injection site bruising [Unknown]
  - Skin discolouration [Recovering/Resolving]
  - Herpes zoster [Unknown]
  - Pigmentation disorder [Unknown]
  - Dandruff [Unknown]
  - Pruritus [Unknown]
  - Therapeutic product effect incomplete [Unknown]
